FAERS Safety Report 4386314-2 (Version None)
Quarter: 2004Q2

REPORT INFORMATION
  Report Type: 
  Country: None (occurrence: None)
  Receive Date: 20040623
  Receipt Date: 20040611
  Transmission Date: 20050107
  Serious: Yes (Death)
  Sender: FDA-Public Use
  Company Number: ES-JNJFOC-20040603237

PATIENT
  Sex: 0

DRUGS (1)
  1. FENTANYL [Suspect]
     Dosage: TRANSDERMAL
     Route: 062

REACTIONS (1)
  - DISEASE PROGRESSION [None]
